FAERS Safety Report 4287895-X (Version None)
Quarter: 2004Q1

REPORT INFORMATION
  Report Type: 
  Country: None (occurrence: None)
  Receive Date: 20040209
  Receipt Date: 20031024
  Transmission Date: 20041129
  Serious: Yes (Hospitalization)
  Sender: FDA-Public Use
  Company Number: US-GLAXOSMITHKLINE-A0431549A

PATIENT
  Age: 58 Year
  Sex: Female
  Weight: 70.5 kg

DRUGS (7)
  1. PAXIL [Suspect]
     Indication: DEPRESSION
     Dosage: 12.5MG PER DAY
     Route: 048
     Dates: start: 20030904, end: 20031017
  2. XANAX [Concomitant]
  3. THORAZINE [Concomitant]
  4. AMITRIPTYLINE HCL [Concomitant]
  5. BACLOFEN [Concomitant]
  6. LIPITOR [Concomitant]
  7. SYNTHROID [Concomitant]

REACTIONS (1)
  - HICCUPS [None]
